FAERS Safety Report 10499030 (Version 3)
Quarter: 2014Q4

REPORT INFORMATION
  Report Type: Report from Study
  Country: US (occurrence: US)
  Receive Date: 20141006
  Receipt Date: 20141027
  Transmission Date: 20150528
  Serious: Yes (Death, Other)
  Sender: FDA-Public Use
  Company Number: US-ACTELION-A-US2014-106164

PATIENT
  Age: 54 Year
  Sex: Male

DRUGS (12)
  1. LETAIRIS [Concomitant]
     Active Substance: AMBRISENTAN
  2. ZOFRAN [Concomitant]
     Active Substance: ONDANSETRON HYDROCHLORIDE
  3. METOLAZONE. [Concomitant]
     Active Substance: METOLAZONE
  4. VENTAVIS [Suspect]
     Active Substance: ILOPROST
     Indication: PULMONARY ARTERIAL HYPERTENSION
     Dosage: 5 MCG, UP TO 9X/DAY
     Route: 055
     Dates: start: 20140516, end: 20141001
  5. CARBAMAZEPINE. [Concomitant]
     Active Substance: CARBAMAZEPINE
  6. LANTUS [Concomitant]
     Active Substance: INSULIN GLARGINE
  7. SPIRIVA [Concomitant]
     Active Substance: TIOTROPIUM BROMIDE MONOHYDRATE
  8. OXYCODONE [Concomitant]
     Active Substance: OXYCODONE
  9. SILDENAFIL. [Concomitant]
     Active Substance: SILDENAFIL
  10. HUMALOG [Concomitant]
     Active Substance: INSULIN LISPRO
  11. AZACITIDINE. [Concomitant]
     Active Substance: AZACITIDINE
  12. SYMBICORT [Concomitant]
     Active Substance: BUDESONIDE\FORMOTEROL FUMARATE DIHYDRATE

REACTIONS (1)
  - Leukaemia [Fatal]
